FAERS Safety Report 25641433 (Version 1)
Quarter: 2025Q3

REPORT INFORMATION
  Report Type: Spontaneous
  Country: PA (occurrence: PA)
  Receive Date: 20250804
  Receipt Date: 20250804
  Transmission Date: 20251021
  Serious: Yes (Other)
  Sender: INSUD PHARMA
  Company Number: PA-EXELTIS PHARMACEUTICAL HOLDING, S.L.-2507PA05871

PATIENT
  Age: 25 Year
  Sex: Female

DRUGS (1)
  1. DROSPIRENONE [Suspect]
     Active Substance: DROSPIRENONE
     Indication: Contraception
     Dosage: 4 MILLIGRAM, QD
     Route: 048
     Dates: start: 20241002, end: 20250624

REACTIONS (7)
  - Pregnancy on oral contraceptive [Recovered/Resolved]
  - Drug ineffective [Not Recovered/Not Resolved]
  - Vomiting [Unknown]
  - Nausea [Unknown]
  - Intermenstrual bleeding [Unknown]
  - Dysmenorrhoea [Unknown]
  - Abortion spontaneous [Unknown]

NARRATIVE: CASE EVENT DATE: 20250430
